FAERS Safety Report 6110134-1 (Version None)
Quarter: 2009Q1

REPORT INFORMATION
  Report Type: 
  Country: None (occurrence: None)
  Receive Date: 20090310
  Receipt Date: 20090303
  Transmission Date: 20090719
  Serious: Yes (Death, Other)
  Sender: FDA-Public Use
  Company Number: US-AVENTIS-200911697US

PATIENT
  Age: 53 Year
  Sex: Female
  Weight: 136.07 kg

DRUGS (2)
  1. LOVENOX [Suspect]
     Indication: PROPHYLAXIS
     Dosage: DOSE: UNK
     Route: 051
     Dates: start: 20090101, end: 20090201
  2. COUMADIN [Concomitant]
     Dosage: DOSE: UNK

REACTIONS (4)
  - DEATH [None]
  - DRUG INEFFECTIVE [None]
  - PULMONARY EMBOLISM [None]
  - WRONG TECHNIQUE IN DRUG USAGE PROCESS [None]
